FAERS Safety Report 9624708 (Version 2)
Quarter: 2014Q1

REPORT INFORMATION
  Report Type: Spontaneous
  Country: JP (occurrence: None)
  Receive Date: 20131010
  Receipt Date: 20140205
  Transmission Date: 20141002
  Serious: Yes (Death, Life-Threatening, Hospitalization, Other)
  Sender: FDA-Public Use
  Company Number: CO-OR-JP-2013-115

PATIENT
  Age: 56 Year
  Sex: Female

DRUGS (2)
  1. PREDNISOLONE [Suspect]
     Indication: THROMBOTIC THROMBOCYTOPENIC PURPURA
  2. METHYLPREDNISOLONE [Concomitant]

REACTIONS (6)
  - Cerebral haemorrhage [None]
  - Anaemia [None]
  - Thrombocytopenia [None]
  - Coma [None]
  - Interstitial lung disease [None]
  - Pulmonary haemorrhage [None]
